FAERS Safety Report 15139062 (Version 2)
Quarter: 2018Q4

REPORT INFORMATION
  Report Type: Spontaneous
  Country: GR (occurrence: GR)
  Receive Date: 20180713
  Receipt Date: 20181003
  Transmission Date: 20190204
  Serious: Yes (Other)
  Sender: FDA-Public Use
  Company Number: PHHY2018GR041010

PATIENT
  Age: 43 Year

DRUGS (4)
  1. CRIZOTINIB [Suspect]
     Active Substance: CRIZOTINIB
     Indication: ADENOCARCINOMA
     Dosage: 500 MG, QD (250 MG, 2 X/DAY)
     Route: 065
     Dates: start: 201211
  2. CISPLATIN. [Suspect]
     Active Substance: CISPLATIN
     Indication: ADENOCARCINOMA
     Dosage: 80 MG/M2, CYCLIC (PER DAY, EVERY THREE WEEKS FOR 6 CYCLES)
     Route: 065
     Dates: start: 201111
  3. DOCETAXEL. [Suspect]
     Active Substance: DOCETAXEL
     Indication: ADENOCARCINOMA
     Dosage: 75 MG/M2, Q3W (EVERY 3 WEEKS)
     Route: 065
     Dates: start: 201206
  4. PEMETREXED. [Suspect]
     Active Substance: PEMETREXED
     Indication: ADENOCARCINOMA
     Dosage: 500 MG/M2, CYCLIC (PER DAY, EVERY 3 WEEKS FOR 6 CYCLES)
     Route: 065
     Dates: start: 201111

REACTIONS (7)
  - Nervous system disorder [Unknown]
  - Respiratory disorder [Unknown]
  - Malaise [Unknown]
  - Product use in unapproved indication [Unknown]
  - Fatigue [Unknown]
  - Neoplasm progression [Unknown]
  - Cough [Unknown]

NARRATIVE: CASE EVENT DATE: 201702
